FAERS Safety Report 8504973-7 (Version None)
Quarter: 2012Q3

REPORT INFORMATION
  Report Type: 
  Country: None (occurrence: None)
  Receive Date: 20120712
  Receipt Date: 20120703
  Transmission Date: 20120928
  Serious: Yes (Other)
  Sender: FDA-Public Use
  Company Number: US-ELI_LILLY_AND_COMPANY-US201207001050

PATIENT
  Sex: Male
  Weight: 107.48 kg

DRUGS (2)
  1. EFFIENT [Suspect]
     Indication: PERCUTANEOUS CORONARY INTERVENTION
     Dosage: 10 MG, QD
     Dates: start: 20110624
  2. ALLOPURINOL [Concomitant]

REACTIONS (6)
  - PNEUMOTHORAX [None]
  - WEIGHT FLUCTUATION [None]
  - CONTUSION [None]
  - DIAPHRAGMATIC INJURY [None]
  - ASTHENIA [None]
  - RENAL IMPAIRMENT [None]
